FAERS Safety Report 9883332 (Version 2)
Quarter: 2014Q1

REPORT INFORMATION
  Report Type: Spontaneous
  Country: JP (occurrence: JP)
  Receive Date: 20140210
  Receipt Date: 20140312
  Transmission Date: 20141002
  Serious: Yes (Other)
  Sender: FDA-Public Use
  Company Number: JP-ROCHE-1344104

PATIENT
  Age: 68 Year
  Sex: Female
  Weight: 45 kg

DRUGS (3)
  1. HERCEPTIN [Suspect]
     Indication: BREAST CANCER
     Route: 041
     Dates: start: 20140121, end: 20140121
  2. PERJETA [Suspect]
     Indication: BREAST CANCER
     Dosage: STRENGTH: 420 MG/14 ML
     Route: 041
     Dates: start: 20140121, end: 20140121
  3. TAXOTERE [Concomitant]
     Indication: BREAST CANCER
     Route: 041
     Dates: start: 20140121, end: 20140121

REACTIONS (1)
  - Interstitial lung disease [Recovering/Resolving]
